FAERS Safety Report 12080792 (Version 1)
Quarter: 2016Q1

REPORT INFORMATION
  Report Type: Spontaneous
  Country: CA (occurrence: CA)
  Receive Date: 20160216
  Receipt Date: 20160216
  Transmission Date: 20160526
  Serious: Yes (Hospitalization)
  Sender: FDA-Public Use
  Company Number: CA-PFIZER INC-2016078578

PATIENT
  Sex: Male

DRUGS (2)
  1. COUMADIN [Interacting]
     Active Substance: WARFARIN SODIUM
     Route: 065
  2. DILANTIN [Suspect]
     Active Substance: PHENYTOIN
     Route: 065

REACTIONS (2)
  - Deep vein thrombosis [Unknown]
  - Drug interaction [Unknown]
